FAERS Safety Report 21880734 (Version 1)
Quarter: 2023Q1

REPORT INFORMATION
  Report Type: Spontaneous
  Country: US (occurrence: None)
  Receive Date: 20230117
  Receipt Date: 20230117
  Transmission Date: 20230418
  Serious: Yes (Death)
  Sender: FDA-Public Use
  Company Number: None

PATIENT
  Age: 85 Year
  Sex: Male

DRUGS (15)
  1. REPATHA [Suspect]
     Active Substance: EVOLOCUMAB
     Indication: Type IIa hyperlipidaemia
     Dosage: 140 MG Q 14 DAYS UNDER THE SKIN
     Route: 058
     Dates: start: 202212, end: 202301
  2. ALENDRONATE [Concomitant]
     Active Substance: ALENDRONATE SODIUM
  3. BISACODYL [Concomitant]
     Active Substance: BISACODYL
  4. FINASTERIDE [Concomitant]
     Active Substance: FINASTERIDE
  5. METFORMIN [Concomitant]
     Active Substance: METFORMIN HYDROCHLORIDE
  6. METHOTREXATE [Concomitant]
     Active Substance: METHOTREXATE
  7. MONTELUKAST [Concomitant]
     Active Substance: MONTELUKAST SODIUM
  8. TAMSULOSIN [Concomitant]
     Active Substance: TAMSULOSIN
  9. VITAMIN D3 [Concomitant]
  10. AMITRIPTYLINE [Concomitant]
     Active Substance: AMITRIPTYLINE
  11. ASPIRIN 81MG EC LOW DOSE [Concomitant]
  12. BRILINTA [Concomitant]
     Active Substance: TICAGRELOR
  13. EUTHYROX [Concomitant]
     Active Substance: LEVOTHYROXINE SODIUM
  14. EZETIMIBE [Concomitant]
  15. FENOFIBRATE [Concomitant]
     Active Substance: FENOFIBRATE

REACTIONS (1)
  - Death [None]

NARRATIVE: CASE EVENT DATE: 20230117
